FAERS Safety Report 10154931 (Version 1)
Quarter: 2014Q2

REPORT INFORMATION
  Report Type: Spontaneous
  Country: US (occurrence: None)
  Receive Date: 20140505
  Receipt Date: 20140505
  Transmission Date: 20141212
  Serious: No
  Sender: FDA-Public Use
  Company Number: None

PATIENT
  Age: 79 Year
  Sex: Male

DRUGS (1)
  1. SPIRIVA [Suspect]
     Dosage: 1 CAPSULE, QD, RESPIRATORY
     Dates: start: 20140503, end: 20140503

REACTIONS (2)
  - Chronic obstructive pulmonary disease [None]
  - Accidental exposure to product [None]
